FAERS Safety Report 21885906 (Version 1)
Quarter: 2023Q1

REPORT INFORMATION
  Report Type: Report from Study
  Country: US (occurrence: US)
  Receive Date: 20230119
  Receipt Date: 20230119
  Transmission Date: 20230418
  Serious: No
  Sender: FDA-Public Use
  Company Number: US-ABBVIE-4240309

PATIENT
  Sex: Female
  Weight: 102.05 kg

DRUGS (1)
  1. RINVOQ [Suspect]
     Active Substance: UPADACITINIB
     Indication: Cor pulmonale chronic
     Route: 048

REACTIONS (1)
  - Pneumonia [Unknown]
